FAERS Safety Report 25577449 (Version 1)
Quarter: 2025Q3

REPORT INFORMATION
  Report Type: Spontaneous
  Country: US (occurrence: US)
  Receive Date: 20250718
  Receipt Date: 20250718
  Transmission Date: 20251020
  Serious: No
  Sender: SANOFI AVENTIS
  Company Number: US-SA-2025SA204091

PATIENT
  Sex: Male

DRUGS (9)
  1. AUBAGIO [Suspect]
     Active Substance: TERIFLUNOMIDE
     Indication: Multiple sclerosis
  2. OCREVUS [Concomitant]
     Active Substance: OCRELIZUMAB
  3. TYSABRI [Concomitant]
     Active Substance: NATALIZUMAB
  4. PREDNISONE [Concomitant]
     Active Substance: PREDNISONE
  5. BACLOFEN [Concomitant]
     Active Substance: BACLOFEN
  6. KLONOPIN [Concomitant]
     Active Substance: CLONAZEPAM
  7. SOLU-MEDROL [Concomitant]
     Active Substance: METHYLPREDNISOLONE SODIUM SUCCINATE
  8. WARFARIN [Concomitant]
     Active Substance: WARFARIN
  9. CALCIUM\CHOLECALCIFEROL\MAGNESIUM [Concomitant]
     Active Substance: CALCIUM\CHOLECALCIFEROL\MAGNESIUM

REACTIONS (1)
  - Drug ineffective [Unknown]
